FAERS Safety Report 8570768-1 (Version None)
Quarter: 2012Q3

REPORT INFORMATION
  Report Type: 
  Country: None (occurrence: None)
  Receive Date: 20120805
  Receipt Date: 20120723
  Transmission Date: 20120928
  Serious: No
  Sender: FDA-Public Use
  Company Number: US-009507513-1207USA011434

PATIENT

DRUGS (4)
  1. VYTORIN [Suspect]
     Route: 048
  2. CRESTOR [Suspect]
     Route: 048
  3. LISINOPRIL [Concomitant]
  4. ATENOLOL [Concomitant]

REACTIONS (3)
  - MALAISE [None]
  - ADVERSE EVENT [None]
  - FATIGUE [None]
